FAERS Safety Report 5010382-8 (Version None)
Quarter: 2006Q2

REPORT INFORMATION
  Report Type: 
  Country: None (occurrence: None)
  Receive Date: 20060523
  Receipt Date: 20060509
  Transmission Date: 20061013
  Serious: Yes (Life-Threatening, Hospitalization)
  Sender: FDA-Public Use
  Company Number: 2006S1004112

PATIENT
  Age: 47 Year
  Sex: Male
  Weight: 103.4201 kg

DRUGS (10)
  1. ORAVESCENT FENTANYL CITRATE [Suspect]
     Indication: BREAKTHROUGH PAIN
     Dosage: 800 UG;PRN;ORAL
     Route: 048
     Dates: start: 20050523, end: 20060414
  2. ORAVESCENT FENTANYL CITRATE [Suspect]
     Indication: PAIN
     Dosage: 800 UG;PRN;ORAL
     Route: 048
     Dates: start: 20050523, end: 20060414
  3. MORPHINE SULFATE [Suspect]
     Dosage: 90 MG;QD;ORAL
     Route: 048
     Dates: start: 20020101
  4. CLONIDINE HCL [Suspect]
     Dosage: 50 MG;QD;ORAL
     Route: 048
     Dates: start: 20020101
  5. HYDROMORPHONE HYDROCHLORIDE [Suspect]
     Dosage: 5 MG;QD;ORAL
     Route: 048
     Dates: start: 20020101
  6. NOTRIPTYLINE CAPSULES, USP [Suspect]
     Indication: MIGRAINE
     Dosage: 10 MG;QD;ORAL
     Route: 048
     Dates: start: 20050808
  7. LISINOPRIL [Suspect]
     Indication: HYPERTENSION
     Dosage: 10 MG;QD;ORAL
     Route: 048
     Dates: start: 20060410
  8. TEMAZEPAM [Concomitant]
  9. VALPROATE SODIUM [Concomitant]
  10. LANSOPRAZOLE [Concomitant]

REACTIONS (5)
  - FAMILY STRESS [None]
  - INTENTIONAL DRUG MISUSE [None]
  - MIGRAINE [None]
  - MULTIPLE DRUG OVERDOSE INTENTIONAL [None]
  - SUICIDE ATTEMPT [None]
